FAERS Safety Report 4450119-4 (Version None)
Quarter: 2004Q3

REPORT INFORMATION
  Report Type: 
  Country: None (occurrence: None)
  Receive Date: 20040804
  Receipt Date: 20040312
  Transmission Date: 20050211
  Serious: Yes (Hospitalization)
  Sender: FDA-Public Use
  Company Number: 204737

PATIENT
  Age: 66 Year
  Sex: Female

DRUGS (6)
  1. HERCEPTIN [Suspect]
     Indication: BREAST CANCER
     Dosage: SEE IMAGE
     Route: 042
     Dates: start: 20031217, end: 20040212
  2. CARBOPLATIN [Suspect]
     Indication: BREAST CANCER
     Dosage: 532 MG, INTRAVENOUS
     Route: 042
  3. PRILOSEC [Concomitant]
  4. TYLENOL WITH CODEINE #3 (UNTIED STATES) (ACETAMINOPHEN, CODEINE PHOSPH [Concomitant]
  5. COMPAZINE (PROCHLROPERAZINE) [Concomitant]
  6. .. [Concomitant]

REACTIONS (1)
  - PANCREATITIS [None]
